FAERS Safety Report 11480856 (Version 2)
Quarter: 2015Q4

REPORT INFORMATION
  Report Type: Spontaneous
  Country: IT (occurrence: IT)
  Receive Date: 20150909
  Receipt Date: 20151124
  Transmission Date: 20160304
  Serious: Yes (Hospitalization, Other)
  Sender: FDA-Public Use
  Company Number: IT-BRISTOL-MYERS SQUIBB COMPANY-BMS-2015-058410

PATIENT
  Age: 86 Year
  Sex: Male
  Weight: 97 kg

DRUGS (1)
  1. COUMADIN [Suspect]
     Active Substance: WARFARIN SODIUM
     Indication: MYOCARDIAL ISCHAEMIA
     Dosage: 5 MG, PRN
     Route: 048

REACTIONS (10)
  - Flatulence [Not Recovered/Not Resolved]
  - Overdose [Not Recovered/Not Resolved]
  - Nausea [Not Recovered/Not Resolved]
  - Vomiting [Not Recovered/Not Resolved]
  - Acute abdomen [Not Recovered/Not Resolved]
  - Peritoneal haemorrhage [Unknown]
  - Umbilical hernia [None]
  - Dyspnoea [None]
  - Constipation [Not Recovered/Not Resolved]
  - Explorative laparotomy [Unknown]

NARRATIVE: CASE EVENT DATE: 20150222
